FAERS Safety Report 9339567 (Version 7)
Quarter: 2014Q1

REPORT INFORMATION
  Report Type: Report from Study
  Country: DE (occurrence: DE)
  Receive Date: 20130610
  Receipt Date: 20140307
  Transmission Date: 20141002
  Serious: Yes (Life-Threatening, Hospitalization, Disabling, Other)
  Sender: FDA-Public Use
  Company Number: DE-BAYER-2013-061098

PATIENT
  Age: 67 Year
  Sex: Female
  Weight: 60 kg

DRUGS (9)
  1. SORAFENIB (RAF KINASE INHIBITOR) [Suspect]
     Indication: RENAL CELL CARCINOMA
     Dosage: 200 MG, QD
     Route: 048
     Dates: start: 20130408, end: 20130803
  2. CPS [Concomitant]
     Dosage: 0142 G, UNK
     Dates: start: 201101
  3. DREISAVIT [Concomitant]
     Dosage: 187.06 MG, UNK
     Dates: start: 2012
  4. METOPROLOL SUCCINATE [Concomitant]
     Dosage: 142.5 MG, UNK
     Dates: start: 200608
  5. NITRAZEPAM AL [Concomitant]
     Dosage: 10 MG, UNK
     Dates: start: 201205
  6. PANTOPRAZOLE [Concomitant]
     Dosage: 20 MG, UNK
     Dates: start: 201210
  7. CLOPIDOGREL [Concomitant]
     Dosage: UNK
     Dates: start: 20130807, end: 20130907
  8. BELOC ZOK [Concomitant]
  9. PANTOZOL [Concomitant]
     Dosage: 20 MG

REACTIONS (6)
  - Acute myocardial infarction [Recovered/Resolved with Sequelae]
  - Dyspnoea exertional [Not Recovered/Not Resolved]
  - Mitral valve repair [Recovered/Resolved with Sequelae]
  - Jugular vein thrombosis [Not Recovered/Not Resolved]
  - Cardiac failure [Not Recovered/Not Resolved]
  - Dyspnoea [Not Recovered/Not Resolved]
